FAERS Safety Report 10059651 (Version 1)
Quarter: 2014Q2

REPORT INFORMATION
  Report Type: Spontaneous
  Country: US (occurrence: US)
  Receive Date: 20140404
  Receipt Date: 20140404
  Transmission Date: 20141212
  Serious: No
  Sender: FDA-Public Use
  Company Number: US-009507513-1403USA006446

PATIENT
  Age: 22 Year
  Sex: Female

DRUGS (3)
  1. NEXPLANON [Suspect]
     Indication: CONTRACEPTION
     Dosage: 3 YEAR IMPLANT
     Route: 059
     Dates: start: 20131122
  2. QUETIAPINE FUMARATE [Concomitant]
     Dosage: 25 MG, PRN
  3. AMITRIPTYLIN [Concomitant]
     Dosage: 10 MG, UNK

REACTIONS (1)
  - Implant site pain [Unknown]
